FAERS Safety Report 9625509 (Version 1)
Quarter: 2013Q4

REPORT INFORMATION
  Report Type: Spontaneous
  Country: NL (occurrence: NL)
  Receive Date: 20131016
  Receipt Date: 20131016
  Transmission Date: 20140711
  Serious: Yes (Hospitalization)
  Sender: FDA-Public Use
  Company Number: PHHY2013NL113026

PATIENT
  Sex: Male

DRUGS (1)
  1. CO-TRIMOXAZOLE [Suspect]

REACTIONS (6)
  - Mania [Recovered/Resolved]
  - Confusional state [Recovered/Resolved]
  - Non-consummation [Recovered/Resolved]
  - Agitation [Recovered/Resolved]
  - Sleep disorder [Recovered/Resolved]
  - Abnormal behaviour [Recovered/Resolved]
